FAERS Safety Report 7690837 (Version 2)
Quarter: 2014Q2

REPORT INFORMATION
  Report Type: Spontaneous
  Country: FR (occurrence: FR)
  Receive Date: 20101203
  Receipt Date: 20140506
  Transmission Date: 20141212
  Serious: Yes (Life-Threatening, Hospitalization)
  Sender: FDA-Public Use
  Company Number: FR-JNJFOC-20101200678

PATIENT
  Age: 70 Year
  Sex: Female

DRUGS (5)
  1. HALDOL [Suspect]
     Indication: DELIRIUM
     Route: 048
     Dates: start: 20101015, end: 20101017
  2. RIVOTRIL [Suspect]
     Indication: DELIRIUM
     Route: 048
     Dates: start: 20101015
  3. IMOVANE [Suspect]
     Indication: DELIRIUM
     Route: 048
     Dates: start: 20101015
  4. AMLOR [Concomitant]
     Indication: DELIRIUM
     Route: 065
     Dates: start: 20101015
  5. LOXEN [Concomitant]
     Indication: DELIRIUM
     Route: 065
     Dates: start: 20101015

REACTIONS (2)
  - Coma [Recovered/Resolved]
  - Inappropriate antidiuretic hormone secretion [Recovered/Resolved]
